FAERS Safety Report 4508526-7 (Version None)
Quarter: 2004Q4

REPORT INFORMATION
  Report Type: 
  Country: None (occurrence: None)
  Receive Date: 20041123
  Receipt Date: 20040317
  Transmission Date: 20050328
  Serious: No
  Sender: FDA-Public Use
  Company Number: US-GLAXOSMITHKLINE-A0503221A

PATIENT
  Age: 46 Year
  Sex: Female

DRUGS (5)
  1. WELLBUTRIN SR [Suspect]
     Dosage: 150MG PER DAY
     Route: 048
     Dates: start: 20040301
  2. BLOOD PRESSURE MEDICATION [Concomitant]
  3. CHOLESTEROL [Concomitant]
  4. BC [Concomitant]
     Route: 048
  5. SINUS MEDICATION [Concomitant]

REACTIONS (3)
  - BLOOD PRESSURE INCREASED [None]
  - RASH [None]
  - TINNITUS [None]
